FAERS Safety Report 10188364 (Version 1)
Quarter: 2014Q2

REPORT INFORMATION
  Report Type: Spontaneous
  Country: US (occurrence: US)
  Receive Date: 20140522
  Receipt Date: 20140522
  Transmission Date: 20141212
  Serious: Yes (Other)
  Sender: FDA-Public Use
  Company Number: US-JNJFOC-20140509295

PATIENT
  Sex: Male
  Weight: 115.67 kg

DRUGS (7)
  1. XARELTO [Suspect]
     Indication: CEREBROVASCULAR ACCIDENT PROPHYLAXIS
     Route: 048
     Dates: start: 20140211
  2. XARELTO [Suspect]
     Indication: ATRIAL FIBRILLATION
     Route: 048
     Dates: start: 20140211
  3. DILTIAZEM [Concomitant]
     Route: 065
  4. SPIRONOLACTONE [Concomitant]
     Route: 065
  5. AMITRIPTYLINE [Concomitant]
     Dosage: EVERY EVENING
     Route: 065
  6. MAGNESIUM [Concomitant]
     Route: 065
  7. FUROSEMIDE [Concomitant]
     Dosage: EVERY MORNING
     Route: 065

REACTIONS (1)
  - Skin mass [Unknown]
